FAERS Safety Report 7174900-6 (Version None)
Quarter: 2010Q4

REPORT INFORMATION
  Report Type: 
  Country: None (occurrence: None)
  Receive Date: 20101219
  Receipt Date: 20101216
  Transmission Date: 20110411
  Serious: Yes (Other)
  Sender: FDA-Public Use
  Company Number: KR-BRISTOL-MYERS SQUIBB COMPANY-15443930

PATIENT
  Sex: Male

DRUGS (1)
  1. BARACLUDE [Suspect]
     Indication: HEPATITIS B
     Dosage: DOSE TAKEN FOR 2YEARS 8 MONTHS.

REACTIONS (2)
  - DRUG RESISTANCE [None]
  - HEPATIC CIRRHOSIS [None]
